FAERS Safety Report 5980678 (Version 3)
Quarter: 2013Q1

REPORT INFORMATION
  Report Type: Other
  Country: FI (occurrence: FI)
  Receive Date: 20060209
  Receipt Date: 20130117
  Transmission Date: 20140127
  Serious: Yes (Congenital Anomaly, Other)
  Sender: FDA-Public Use
  Company Number: FI-RB-2755-2006

PATIENT
  Age: 23 Year
  Sex: Female

DRUGS (7)
  1. BUPRENORPHINE HYDROCHLORIDE [Suspect]
     Indication: DRUG DEPENDENCE
     Route: 060
  2. BUPRENORPHINE HYDROCHLORIDE [Suspect]
     Route: 060
  3. BUPRENORPHINE HYDROCHLORIDE [Suspect]
     Route: 060
  4. BUPRENORPHINE HYDROCHLORIDE [Suspect]
     Route: 060
  5. PROMAZINE [Suspect]
     Indication: PRODUCT USED FOR UNKNOWN INDICATION
     Dosage: DOSING DETAILS UNKNOWN
     Route: 065
  6. METRONIDAZOLE [Suspect]
     Indication: PRODUCT USED FOR UNKNOWN INDICATION
     Dosage: DOSAGE UNKNOWN
     Route: 065
  7. PIVMECILLINAM HYDROCHLORIDE [Suspect]
     Indication: PRODUCT USED FOR UNKNOWN INDICATION
     Dosage: DOSAGE UNKNOWN
     Route: 065

REACTIONS (11)
  - Congenital cystic kidney disease [Recovered/Resolved]
  - Abortion induced [Recovered/Resolved]
  - Renal dysplasia [Recovered/Resolved]
  - Adrenal haemorrhage [Recovered/Resolved]
  - Subarachnoid haemorrhage [Recovered/Resolved]
  - Pulmonary hypoplasia [Recovered/Resolved]
  - Amniotic fluid volume decreased [Recovered/Resolved]
  - Stillbirth [Recovered/Resolved]
  - Fatigue [Recovered/Resolved]
  - Weight gain poor [Recovered/Resolved]
  - Exposure during pregnancy [Recovered/Resolved]
